FAERS Safety Report 21207757 (Version 1)
Quarter: 2022Q3

REPORT INFORMATION
  Report Type: Spontaneous
  Country: US (occurrence: None)
  Receive Date: 20220811
  Receipt Date: 20220811
  Transmission Date: 20221027
  Serious: No
  Sender: FDA-Public Use
  Company Number: None

PATIENT
  Age: 59 Year
  Sex: Female
  Weight: 56.25 kg

DRUGS (9)
  1. EVEROLIMUS [Suspect]
     Active Substance: EVEROLIMUS
     Indication: Breast cancer female
     Dosage: FREQUENCY : DAILY;?
     Route: 048
  2. AFINITOR [Concomitant]
     Active Substance: EVEROLIMUS
  3. DEXAMETHASONE [Concomitant]
     Active Substance: DEXAMETHASONE
  4. ELIQUIS [Concomitant]
     Active Substance: APIXABAN
  5. EXEMESTANE [Concomitant]
     Active Substance: EXEMESTANE
  6. OLMESARTAN [Concomitant]
     Active Substance: OLMESARTAN
  7. OXYCODONE [Concomitant]
     Active Substance: OXYCODONE
  8. ZOFRAN [Concomitant]
     Active Substance: ONDANSETRON HYDROCHLORIDE
  9. ULTRAM [Concomitant]
     Active Substance: TRAMADOL HYDROCHLORIDE

REACTIONS (1)
  - Drug ineffective [None]
